FAERS Safety Report 13269093 (Version 1)
Quarter: 2017Q1

REPORT INFORMATION
  Report Type: Spontaneous
  Country: US (occurrence: US)
  Receive Date: 20170224
  Receipt Date: 20170224
  Transmission Date: 20170428
  Serious: Yes (Other)
  Sender: FDA-Public Use
  Company Number: US-LPDUSPRD-20170193

PATIENT
  Age: 34 Year
  Sex: Female

DRUGS (3)
  1. SODIUM CHLORIDE INJECTION, USP (2802-25) [Suspect]
     Active Substance: SODIUM CHLORIDE
     Dosage: 5 ML
     Route: 008
  2. LIDOCAINE HCL INJECTION, USP (0517-9402-01) [Suspect]
     Active Substance: LIDOCAINE HYDROCHLORIDE
     Dosage: 3 ML
     Route: 008
  3. EPINEPHRINE INJECTION, USP (1071-25) [Suspect]
     Active Substance: EPINEPHRINE
     Dosage: DOSE UNKNOWN
     Route: 008

REACTIONS (3)
  - Congenital spinal stenosis [Unknown]
  - Exposure during pregnancy [Recovered/Resolved]
  - Condition aggravated [Unknown]
